FAERS Safety Report 6269109-4 (Version None)
Quarter: 2009Q3

REPORT INFORMATION
  Report Type: 
  Country: None (occurrence: None)
  Receive Date: 20090715
  Receipt Date: 20090708
  Transmission Date: 20100115
  Serious: Yes (Other)
  Sender: FDA-Public Use
  Company Number: JP-BRISTOL-MYERS SQUIBB COMPANY-14697486

PATIENT
  Age: 81 Year
  Sex: Female

DRUGS (2)
  1. TAXOL [Suspect]
     Indication: BREAST CANCER
     Route: 041
     Dates: start: 20040601, end: 20040601
  2. MEDROXYPROGESTERONE ACETATE [Suspect]

REACTIONS (2)
  - CEREBRAL INFARCTION [None]
  - WHITE BLOOD CELL COUNT DECREASED [None]
